FAERS Safety Report 8052792-0 (Version None)
Quarter: 2012Q1

REPORT INFORMATION
  Report Type: 
  Country: None (occurrence: None)
  Receive Date: 20120118
  Receipt Date: 20120111
  Transmission Date: 20120608
  Serious: Yes (Hospitalization, Other)
  Sender: FDA-Public Use
  Company Number: PHHY2012BR003374

PATIENT
  Sex: Male
  Weight: 133 kg

DRUGS (5)
  1. INDAPAMIDE [Suspect]
     Indication: DIURETIC THERAPY
     Dosage: 5 MG, Q12H
     Route: 048
     Dates: end: 20111201
  2. DIOVAN [Suspect]
     Dosage: 1 DF (320 MG), DAILY
  3. DIOVAN [Suspect]
     Indication: HYPERTENSION
     Dosage: 1 DF (320 MG,) DAILY
     Route: 048
  4. DIOVAN [Suspect]
     Dosage: 2 DF (160 MG), QD
     Route: 048
     Dates: start: 20040101
  5. ALLOPURINOL [Concomitant]

REACTIONS (6)
  - THROMBOSIS [None]
  - NEPHROLITHIASIS [None]
  - GOUT [None]
  - HYPERTENSION [None]
  - PAIN IN EXTREMITY [None]
  - ARTHRALGIA [None]
